FAERS Safety Report 6114169-4 (Version None)
Quarter: 2009Q1

REPORT INFORMATION
  Report Type: 
  Country: None (occurrence: None)
  Receive Date: 20090312
  Receipt Date: 20080505
  Transmission Date: 20090719
  Serious: No
  Sender: FDA-Public Use
  Company Number: US-ABBOTT-08P-163-0450325-00

PATIENT
  Sex: Female

DRUGS (2)
  1. DEPAKOTE [Suspect]
     Indication: BIPOLAR DISORDER
     Dosage: LOWEST DOSE
     Route: 048
  2. DEPAKOTE [Suspect]
     Indication: BIPOLAR I DISORDER

REACTIONS (3)
  - DRUG INTOLERANCE [None]
  - HYPOTENSION [None]
  - RASH [None]
